FAERS Safety Report 16015639 (Version 2)
Quarter: 2019Q1

REPORT INFORMATION
  Report Type: Spontaneous
  Country: NL (occurrence: NL)
  Receive Date: 20190228
  Receipt Date: 20190304
  Transmission Date: 20190418
  Serious: Yes (Congenital Anomaly, Other)
  Sender: FDA-Public Use
  Company Number: NL-AMGEN-NLDSP2019030637

PATIENT
  Sex: Male

DRUGS (2)
  1. COLECALCIFEROL [Concomitant]
     Active Substance: CHOLECALCIFEROL
     Indication: EXPOSURE DURING PREGNANCY
     Dosage: 400 IU, 1X/DAY
     Route: 064
  2. ENBREL [Suspect]
     Active Substance: ETANERCEPT
     Indication: EXPOSURE DURING PREGNANCY
     Dosage: 50 MG, Q2WK
     Route: 064
     Dates: start: 201004, end: 201802

REACTIONS (2)
  - Maternal exposure during pregnancy [Unknown]
  - Microtia [Not Recovered/Not Resolved]

NARRATIVE: CASE EVENT DATE: 20180301
